FAERS Safety Report 6022983-9 (Version None)
Quarter: 2008Q4

REPORT INFORMATION
  Report Type: 
  Country: None (occurrence: None)
  Receive Date: 20081230
  Receipt Date: 20080516
  Transmission Date: 20090506
  Serious: No
  Sender: FDA-Public Use
  Company Number: US-ABBOTT-08P-163-0452127-00

PATIENT
  Age: 9 Month
  Sex: Male
  Weight: 8.1 kg

DRUGS (4)
  1. CEFDINIR [Suspect]
     Indication: OTITIS MEDIA ACUTE
     Dosage: 62.5 MG (15.4 MG/KG/DAY)
     Route: 048
  2. CEFDINIR [Suspect]
     Dosage: 62.5 MG (15.4 MG/KG/DAY)
     Route: 048
  3. ENFAMIL WITH IRON [Interacting]
     Indication: MEDICAL DIET
     Dosage: 1.8 MG OF IRON/100KCAL
  4. NEOCATE INFANT [Interacting]
     Indication: MEDICAL DIET
     Dosage: 1.85 MG OF IRON/100KCAL

REACTIONS (2)
  - DRUG INTERACTION [None]
  - FAECES DISCOLOURED [None]
